FAERS Safety Report 11898861 (Version 9)
Quarter: 2017Q4

REPORT INFORMATION
  Report Type: Report from Study
  Country: US (occurrence: US)
  Receive Date: 20160108
  Receipt Date: 20171020
  Transmission Date: 20180320
  Serious: Yes (Hospitalization, Other)
  Sender: FDA-Public Use
  Company Number: US-SA-2015SA219734

PATIENT
  Age: 38 Year
  Sex: Female

DRUGS (12)
  1. BACLOFEN. [Concomitant]
     Active Substance: BACLOFEN
  2. KLOR-CON [Concomitant]
     Active Substance: POTASSIUM CHLORIDE
  3. SYNTHROID [Concomitant]
     Active Substance: LEVOTHYROXINE SODIUM
  4. FUROSEMIDE. [Concomitant]
     Active Substance: FUROSEMIDE
  5. LEMTRADA [Suspect]
     Active Substance: ALEMTUZUMAB
     Indication: MULTIPLE SCLEROSIS
     Route: 041
     Dates: start: 20151214, end: 20151218
  6. XIFAXAN [Concomitant]
     Active Substance: RIFAXIMIN
  7. METOPROLOL. [Concomitant]
     Active Substance: METOPROLOL
  8. ALPRAZOLAM. [Concomitant]
     Active Substance: ALPRAZOLAM
  9. OMEPRAZOLE. [Concomitant]
     Active Substance: OMEPRAZOLE
  10. SPIRONOLACTONE. [Concomitant]
     Active Substance: SPIRONOLACTONE
  11. ACYCLOVIR. [Concomitant]
     Active Substance: ACYCLOVIR
  12. ATORVASTATIN [Concomitant]
     Active Substance: ATORVASTATIN

REACTIONS (37)
  - Abdominal cavity drainage [Unknown]
  - Sepsis [Recovered/Resolved]
  - Splenomegaly [Not Recovered/Not Resolved]
  - Nausea [Recovered/Resolved]
  - Amnesia [Not Recovered/Not Resolved]
  - Rash macular [Not Recovered/Not Resolved]
  - Flushing [Unknown]
  - Urinary tract infection [Recovered/Resolved]
  - Fibromyalgia [Not Recovered/Not Resolved]
  - Blood glucose increased [Recovering/Resolving]
  - Haematochezia [Recovered/Resolved]
  - Lipids increased [Unknown]
  - Ammonia increased [Not Recovered/Not Resolved]
  - Dry skin [Not Recovered/Not Resolved]
  - Diabetes mellitus [Not Recovered/Not Resolved]
  - Condition aggravated [Recovered/Resolved]
  - Fungal infection [Unknown]
  - Arthritis [Not Recovered/Not Resolved]
  - Feeding disorder [Recovered/Resolved]
  - Hepatic cirrhosis [Not Recovered/Not Resolved]
  - Aspartate aminotransferase increased [Recovered/Resolved]
  - Anaemia [Recovered/Resolved]
  - Infected cyst [Recovered/Resolved]
  - Haemoglobin decreased [Recovered/Resolved]
  - Pancreatitis chronic [Recovering/Resolving]
  - Abdominal pain [Recovered/Resolved]
  - Pain [Unknown]
  - Pyrexia [Recovered/Resolved]
  - Osteonecrosis [Recovered/Resolved]
  - Rash pruritic [Not Recovered/Not Resolved]
  - Fungal infection [Recovered/Resolved]
  - Vomiting [Unknown]
  - Infection [Unknown]
  - Hepatomegaly [Not Recovered/Not Resolved]
  - Hepatomegaly [Unknown]
  - Ill-defined disorder [Not Recovered/Not Resolved]
  - Renal failure [Recovered/Resolved]

NARRATIVE: CASE EVENT DATE: 2015
